FAERS Safety Report 5475578-X (Version None)
Quarter: 2007Q4

REPORT INFORMATION
  Report Type: 
  Country: None (occurrence: None)
  Receive Date: 20071003
  Receipt Date: 20061011
  Transmission Date: 20080405
  Serious: No
  Sender: FDA-Public Use
  Company Number: US-KINGPHARMUSA00001-K200601310

PATIENT

DRUGS (10)
  1. SONATA [Suspect]
     Indication: INSOMNIA
     Dosage: UNK, PRN, QHS
     Route: 048
  2. GLYBURIDE [Concomitant]
     Indication: DIABETES MELLITUS
  3. METFORMIN HCL [Concomitant]
     Indication: DIABETES MELLITUS
  4. GEMFIBROZIL [Concomitant]
     Indication: BLOOD CHOLESTEROL
  5. LISINOPRIL [Concomitant]
     Indication: CARDIAC DISORDER
  6. ACTOS [Concomitant]
     Indication: DIABETES MELLITUS
  7. COUMADIN [Concomitant]
     Indication: ATRIAL FIBRILLATION
  8. ZANTAC [Concomitant]
     Indication: DYSPEPSIA
  9. LIPITOR [Concomitant]
     Indication: BLOOD CHOLESTEROL
  10. MIRAPEX [Concomitant]
     Indication: DIABETES MELLITUS

REACTIONS (1)
  - DYSPHAGIA [None]
